FAERS Safety Report 13121511 (Version 1)
Quarter: 2017Q1

REPORT INFORMATION
  Report Type: Report from Study
  Country: US (occurrence: US)
  Receive Date: 20170117
  Receipt Date: 20170117
  Transmission Date: 20170428
  Serious: Yes (Hospitalization)
  Sender: FDA-Public Use
  Company Number: US-GILEAD-2017-0252915

PATIENT
  Age: 59 Year
  Sex: Female

DRUGS (11)
  1. CLONIDINE. [Concomitant]
     Active Substance: CLONIDINE
  2. CARVEDILOL. [Concomitant]
     Active Substance: CARVEDILOL
  3. ATORVASTATIN [Concomitant]
     Active Substance: ATORVASTATIN
  4. GLIPIZIDE. [Concomitant]
     Active Substance: GLIPIZIDE
  5. PAROXETINE. [Concomitant]
     Active Substance: PAROXETINE
  6. PLAVIX [Concomitant]
     Active Substance: CLOPIDOGREL BISULFATE
  7. METFORMIN [Concomitant]
     Active Substance: METFORMIN HYDROCHLORIDE
  8. AMBRISENTAN [Suspect]
     Active Substance: AMBRISENTAN
     Indication: PULMONARY HYPERTENSION
     Dosage: 5 MG, QD
     Route: 065
  9. RAMIPRIL. [Concomitant]
     Active Substance: RAMIPRIL
  10. AMLODIPINE [Concomitant]
     Active Substance: AMLODIPINE BESYLATE
  11. LEVOXYL [Concomitant]
     Active Substance: LEVOTHYROXINE SODIUM

REACTIONS (1)
  - Blood pressure abnormal [Unknown]
